FAERS Safety Report 12961561 (Version 5)
Quarter: 2017Q2

REPORT INFORMATION
  Report Type: Report from Study
  Country: JP (occurrence: JP)
  Receive Date: 20161121
  Receipt Date: 20170605
  Transmission Date: 20170830
  Serious: Yes (Hospitalization, Other)
  Sender: FDA-Public Use
  Company Number: JP-CELGENEUS-JPN-2016112358

PATIENT
  Age: 71 Year
  Sex: Female

DRUGS (82)
  1. LENADEX [Suspect]
     Active Substance: DEXAMETHASONE ACETATE
     Dosage: 40 MILLIGRAM
     Route: 048
     Dates: start: 20161018, end: 20161108
  2. KYPROLIS [Suspect]
     Active Substance: CARFILZOMIB
     Indication: PLASMA CELL MYELOMA
     Route: 065
     Dates: start: 20161018, end: 20170110
  3. RBC [Concomitant]
     Active Substance: HUMAN RED BLOOD CELL
     Dosage: 2 UNITS
     Route: 065
     Dates: start: 20160927, end: 20160927
  4. RINDERON A [Concomitant]
     Active Substance: BETAMETHASONE SODIUM PHOSPHATE\NEOMYCIN SULFATE
     Dosage: 2 UNITS
     Route: 065
     Dates: start: 20160920, end: 20160920
  5. DAIKENCHUTO [Concomitant]
     Active Substance: HERBALS
     Dosage: 2 UNITS
     Route: 065
     Dates: start: 20160927, end: 20160927
  6. ELCITONIN [Concomitant]
     Active Substance: ELCATONIN
     Indication: PLASMA CELL MYELOMA
     Route: 041
  7. REVLIMID [Suspect]
     Active Substance: LENALIDOMIDE
     Indication: PLASMA CELL MYELOMA
     Dosage: 25 MG
     Route: 048
     Dates: start: 20160624, end: 20160714
  8. REVLIMID [Suspect]
     Active Substance: LENALIDOMIDE
     Dosage: 5 MG
     Route: 048
     Dates: start: 20160822, end: 20160831
  9. ELIQUIS [Concomitant]
     Active Substance: APIXABAN
     Indication: THROMBOSIS PROPHYLAXIS
     Route: 048
     Dates: start: 20160624, end: 20160817
  10. RBC [Concomitant]
     Active Substance: HUMAN RED BLOOD CELL
     Dosage: 2 UNITS
     Route: 065
     Dates: start: 20160920, end: 20160920
  11. RINDERON A [Concomitant]
     Active Substance: BETAMETHASONE SODIUM PHOSPHATE\NEOMYCIN SULFATE
     Indication: PRODUCT USED FOR UNKNOWN INDICATION
     Route: 065
  12. NEOSTELIN GREEN [Concomitant]
     Indication: PROPHYLAXIS
     Route: 065
  13. NEOSTELIN GREEN [Concomitant]
     Dosage: 2 UNITS
     Route: 065
     Dates: start: 20160927, end: 20160927
  14. NOVAMIN (PROCHLORPERAZINE) [Concomitant]
     Active Substance: PROCHLORPERAZINE
     Indication: PRODUCT USED FOR UNKNOWN INDICATION
     Route: 048
  15. AMBROXOL HYDROCHLORIDE [Concomitant]
     Active Substance: AMBROXOL HYDROCHLORIDE
     Dosage: 2 UNITS
     Route: 065
     Dates: start: 20160920, end: 20160920
  16. AMBROXOL HYDROCHLORIDE [Concomitant]
     Active Substance: AMBROXOL HYDROCHLORIDE
     Dosage: 450 MILLIGRAM
     Route: 065
  17. AMITIZA [Concomitant]
     Active Substance: LUBIPROSTONE
     Indication: PROPHYLAXIS
     Route: 048
  18. SODIUM PICOSULFATE [Concomitant]
     Active Substance: SODIUM PICOSULFATE
     Indication: PROPHYLAXIS
     Route: 048
  19. REVLIMID [Suspect]
     Active Substance: LENALIDOMIDE
     Dosage: 10 MG
     Route: 048
     Dates: start: 20160726, end: 20160727
  20. REVLIMID [Suspect]
     Active Substance: LENALIDOMIDE
     Dosage: 25 MILLIGRAM
     Route: 048
     Dates: start: 20161116, end: 20161206
  21. LENADEX [Suspect]
     Active Substance: DEXAMETHASONE ACETATE
     Indication: PLASMA CELL MYELOMA
     Dosage: 40 MG
     Route: 048
     Dates: start: 20160624, end: 20160715
  22. LENADEX [Suspect]
     Active Substance: DEXAMETHASONE ACETATE
     Dosage: 20 MILLIGRAM
     Route: 048
     Dates: start: 20160822, end: 20160829
  23. LENADEX [Suspect]
     Active Substance: DEXAMETHASONE ACETATE
     Dosage: 4 MILLIGRAM
     Route: 048
     Dates: start: 20161215, end: 20161229
  24. NEOSTELIN GREEN [Concomitant]
     Dosage: 2 UNITS
     Route: 065
     Dates: start: 20160920, end: 20160920
  25. NOVAMIN (PROCHLORPERAZINE) [Concomitant]
     Active Substance: PROCHLORPERAZINE
     Dosage: 2 UNITS
     Route: 065
     Dates: start: 20160920, end: 20160920
  26. AUGMENTIN [Concomitant]
     Active Substance: AMOXICILLIN\CLAVULANATE POTASSIUM
     Indication: PRODUCT USED FOR UNKNOWN INDICATION
     Route: 048
  27. AUGMENTIN [Concomitant]
     Active Substance: AMOXICILLIN\CLAVULANATE POTASSIUM
     Dosage: 2 UNITS
     Route: 065
     Dates: start: 20160920, end: 20160920
  28. FEBURIC [Concomitant]
     Active Substance: FEBUXOSTAT
     Dosage: 2 UNITS
     Route: 065
     Dates: start: 20160920, end: 20160920
  29. FEBURIC [Concomitant]
     Active Substance: FEBUXOSTAT
     Dosage: 2 UNITS
     Route: 065
     Dates: start: 20160927, end: 20160927
  30. ZOVIRAX [Concomitant]
     Active Substance: ACYCLOVIR
     Dosage: 2 UNITS
     Route: 065
     Dates: start: 20160920, end: 20160920
  31. MOSAPRIDE CITRATE [Concomitant]
     Active Substance: MOSAPRIDE CITRATE
     Indication: PROPHYLAXIS
     Route: 048
  32. DAIKENCHUTO [Concomitant]
     Active Substance: HERBALS
     Indication: PROPHYLAXIS
     Route: 048
  33. CANDESARTAN. [Concomitant]
     Active Substance: CANDESARTAN
     Indication: HYPERTENSION
     Dosage: 4 MG
     Route: 048
  34. RBC [Concomitant]
     Active Substance: HUMAN RED BLOOD CELL
     Indication: PRODUCT USED FOR UNKNOWN INDICATION
     Dosage: 2 UNITS
     Route: 065
     Dates: start: 20160815, end: 20160815
  35. DEXART [Concomitant]
     Active Substance: DEXAMETHASONE SODIUM PHOSPHATE
     Indication: PLASMA CELL MYELOMA
     Dosage: 64 MILLIGRAM
     Route: 041
     Dates: start: 20161012, end: 20161015
  36. RINDERON A [Concomitant]
     Active Substance: BETAMETHASONE SODIUM PHOSPHATE\NEOMYCIN SULFATE
     Dosage: 2 UNITS
     Route: 065
     Dates: start: 20160927, end: 20160927
  37. NOVAMIN (PROCHLORPERAZINE) [Concomitant]
     Active Substance: PROCHLORPERAZINE
     Dosage: 2 UNITS
     Route: 065
     Dates: start: 20160927, end: 20160927
  38. AUGMENTIN [Concomitant]
     Active Substance: AMOXICILLIN\CLAVULANATE POTASSIUM
     Dosage: 2 UNITS
     Route: 065
     Dates: start: 20160927, end: 20160927
  39. ASCATE [Concomitant]
     Dosage: 2 UNITS
     Route: 065
     Dates: start: 20160920, end: 20160920
  40. ELCITONIN [Concomitant]
     Active Substance: ELCATONIN
     Dosage: 2 UNITS
     Route: 065
     Dates: start: 20160927, end: 20160927
  41. LENADEX [Suspect]
     Active Substance: DEXAMETHASONE ACETATE
     Dosage: 40 MILLIGRAM
     Route: 048
     Dates: start: 20161116, end: 20161207
  42. LENADEX [Suspect]
     Active Substance: DEXAMETHASONE ACETATE
     Dosage: 4 MILLIGRAM
     Route: 048
     Dates: start: 20161117, end: 20161201
  43. SENNOSIDE [Concomitant]
     Active Substance: SENNOSIDES
     Indication: PRODUCT USED FOR UNKNOWN INDICATION
     Route: 048
     Dates: start: 20160704
  44. OXYCONTIN [Concomitant]
     Active Substance: OXYCODONE HYDROCHLORIDE
     Indication: PAIN
     Dosage: 10 MILLIGRAM
     Route: 048
     Dates: start: 20160725, end: 201608
  45. OXINORM [Concomitant]
     Active Substance: OXYCODONE HYDROCHLORIDE
     Indication: PLASMA CELL MYELOMA
     Route: 065
  46. AMBROXOL HYDROCHLORIDE [Concomitant]
     Active Substance: AMBROXOL HYDROCHLORIDE
     Indication: PRODUCT USED FOR UNKNOWN INDICATION
     Route: 048
  47. ZOVIRAX [Concomitant]
     Active Substance: ACYCLOVIR
     Dosage: 2 UNITS
     Route: 065
     Dates: start: 20160927, end: 20160927
  48. ASCATE [Concomitant]
     Indication: PRODUCT USED FOR UNKNOWN INDICATION
     Route: 048
  49. DAIKENCHUTO [Concomitant]
     Active Substance: HERBALS
     Dosage: 2 UNITS
     Route: 065
     Dates: start: 20160920, end: 20160920
  50. ELCITONIN [Concomitant]
     Active Substance: ELCATONIN
     Dosage: 2 UNITS
     Route: 065
     Dates: start: 20160920, end: 20160920
  51. ZOLEDRONIC ACID HYDRATE [Concomitant]
     Active Substance: ZOLEDRONIC ACID
     Indication: PLASMA CELL MYELOMA
     Route: 041
  52. ZOLEDRONIC ACID HYDRATE [Concomitant]
     Active Substance: ZOLEDRONIC ACID
     Dosage: 2 UNITS
     Route: 065
     Dates: start: 20160927, end: 20160927
  53. REVLIMID [Suspect]
     Active Substance: LENALIDOMIDE
     Dosage: 10 MILLIGRAM
     Route: 048
     Dates: start: 20161018, end: 20161107
  54. AMBROXOL HYDROCHLORIDE [Concomitant]
     Active Substance: AMBROXOL HYDROCHLORIDE
     Dosage: 2 UNITS
     Route: 065
     Dates: start: 20160927, end: 20160927
  55. KYTRIL [Concomitant]
     Active Substance: GRANISETRON HYDROCHLORIDE
     Dosage: 2 UNITS
     Route: 065
     Dates: start: 20160920, end: 20160920
  56. ASCATE [Concomitant]
     Dosage: 2 UNITS
     Route: 065
     Dates: start: 20160927, end: 20160927
  57. AMITIZA [Concomitant]
     Active Substance: LUBIPROSTONE
     Dosage: 2 UNITS
     Route: 065
     Dates: start: 20160927, end: 20160927
  58. SODIUM PICOSULFATE [Concomitant]
     Active Substance: SODIUM PICOSULFATE
     Dosage: 2 UNITS
     Route: 065
     Dates: start: 20160920, end: 20160920
  59. MOSAPRIDE CITRATE [Concomitant]
     Active Substance: MOSAPRIDE CITRATE
     Dosage: 2 UNITS
     Route: 065
     Dates: start: 20160927, end: 20160927
  60. AZILSARTAN [Concomitant]
     Active Substance: AZILSARTAN KAMEDOXOMIL
     Indication: HYPERTENSION
     Dosage: 4 MG
     Route: 065
     Dates: start: 20160601
  61. CALCICOL [Concomitant]
     Active Substance: CALCIUM GLUCONATE
     Indication: PLASMA CELL MYELOMA
     Route: 041
  62. REVLIMID [Suspect]
     Active Substance: LENALIDOMIDE
     Dosage: 25 MILLIGRAM
     Route: 048
     Dates: start: 20161214, end: 20170103
  63. LENADEX [Suspect]
     Active Substance: DEXAMETHASONE ACETATE
     Dosage: 4 MILLIGRAM
     Route: 048
     Dates: start: 20161019, end: 20161102
  64. LENADEX [Suspect]
     Active Substance: DEXAMETHASONE ACETATE
     Dosage: 40 MILLIGRAM
     Route: 048
     Dates: start: 20161214, end: 20170104
  65. DAIPHEN [Suspect]
     Active Substance: SULFAMETHOXAZOLE\TRIMETHOPRIM
     Indication: PNEUMOCYSTIS JIROVECII PNEUMONIA
     Dosage: 1 DF
     Route: 048
     Dates: start: 20160704, end: 20160805
  66. AZILVA [Concomitant]
     Active Substance: AZILSARTAN KAMEDOXOMIL
     Indication: HYPERTENSION
     Route: 048
     Dates: start: 20160601, end: 20160806
  67. MAGMITT [Concomitant]
     Active Substance: MAGNESIUM OXIDE
     Indication: PRODUCT USED FOR UNKNOWN INDICATION
     Route: 048
     Dates: start: 20160604
  68. TIMOPTOL [Concomitant]
     Active Substance: TIMOLOL
     Dosage: 2 UNITS
     Route: 065
     Dates: start: 20160920, end: 20160920
  69. OXINORM [Concomitant]
     Active Substance: OXYCODONE HYDROCHLORIDE
     Dosage: 2 UNITS
     Route: 065
     Dates: start: 20160920, end: 20160920
  70. KYTRIL [Concomitant]
     Active Substance: GRANISETRON HYDROCHLORIDE
     Indication: PROPHYLAXIS
     Route: 048
  71. ZOLEDRONIC ACID HYDRATE [Concomitant]
     Active Substance: ZOLEDRONIC ACID
     Dosage: 2 UNITS
     Route: 065
     Dates: start: 20160920, end: 20160920
  72. LENADEX [Suspect]
     Active Substance: DEXAMETHASONE ACETATE
     Dosage: 40 MILLIGRAM
     Route: 048
     Dates: start: 20160726, end: 20160816
  73. FLUCONAZOLE. [Concomitant]
     Active Substance: FLUCONAZOLE
     Indication: ANTIFUNGAL PROPHYLAXIS
     Route: 048
     Dates: start: 20160701, end: 20160818
  74. TIMOPTOL [Concomitant]
     Active Substance: TIMOLOL
     Indication: PRODUCT USED FOR UNKNOWN INDICATION
     Route: 047
  75. TIMOPTOL [Concomitant]
     Active Substance: TIMOLOL
     Dosage: 2 UNITS
     Route: 065
     Dates: start: 20160927, end: 20160927
  76. OXINORM [Concomitant]
     Active Substance: OXYCODONE HYDROCHLORIDE
     Dosage: 2 UNITS
     Route: 065
     Dates: start: 20160927, end: 20160927
  77. FEBURIC [Concomitant]
     Active Substance: FEBUXOSTAT
     Indication: PROPHYLAXIS
     Route: 048
  78. KYTRIL [Concomitant]
     Active Substance: GRANISETRON HYDROCHLORIDE
     Dosage: 2 UNITS
     Route: 065
     Dates: start: 20160927, end: 20160927
  79. ZOVIRAX [Concomitant]
     Active Substance: ACYCLOVIR
     Indication: PROPHYLAXIS
     Route: 048
  80. AMITIZA [Concomitant]
     Active Substance: LUBIPROSTONE
     Dosage: 2 UNITS
     Route: 065
     Dates: start: 20160920, end: 20160920
  81. SODIUM PICOSULFATE [Concomitant]
     Active Substance: SODIUM PICOSULFATE
     Dosage: 2 UNITS
     Route: 065
     Dates: start: 20160927, end: 20160927
  82. MOSAPRIDE CITRATE [Concomitant]
     Active Substance: MOSAPRIDE CITRATE
     Dosage: 2 UNITS
     Route: 065
     Dates: start: 20160920, end: 20160920

REACTIONS (8)
  - Haemoglobin decreased [Unknown]
  - Plasma cell myeloma [Not Recovered/Not Resolved]
  - Renal disorder [Recovered/Resolved]
  - Herpes zoster [Recovering/Resolving]
  - Pharyngitis [Recovering/Resolving]
  - Post herpetic neuralgia [Recovering/Resolving]
  - Hypokalaemia [Recovered/Resolved]
  - Neutrophil count decreased [Recovered/Resolved]

NARRATIVE: CASE EVENT DATE: 20160711
